FAERS Safety Report 11128997 (Version 2)
Quarter: 2015Q2

REPORT INFORMATION
  Report Type: Spontaneous
  Country: GR (occurrence: GR)
  Receive Date: 20150521
  Receipt Date: 20150609
  Transmission Date: 20150821
  Serious: Yes (Other)
  Sender: FDA-Public Use
  Company Number: GR-BRISTOL-MYERS SQUIBB COMPANY-BMS-2015-030544

PATIENT
  Age: 70 Year
  Sex: Female

DRUGS (3)
  1. LAPRAZOL [Concomitant]
     Indication: ABDOMINAL DISCOMFORT
     Dosage: 30 MG, QD
     Route: 065
  2. ELIQUIS [Suspect]
     Active Substance: APIXABAN
     Indication: CEREBROVASCULAR ACCIDENT PROPHYLAXIS
     Dosage: 5 MG, BID
     Route: 048
     Dates: start: 20150301
  3. DIOVAN [Concomitant]
     Active Substance: VALSARTAN
     Indication: HYPERTENSION
     Dosage: UNK, QD
     Route: 065

REACTIONS (4)
  - Fall [Unknown]
  - Localised infection [Recovering/Resolving]
  - Accident [Unknown]
  - Foot operation [Unknown]

NARRATIVE: CASE EVENT DATE: 20150423
